FAERS Safety Report 6122535-6 (Version None)
Quarter: 2009Q1

REPORT INFORMATION
  Report Type: 
  Country: None (occurrence: None)
  Receive Date: 20090318
  Receipt Date: 20081215
  Transmission Date: 20090719
  Serious: No
  Sender: FDA-Public Use
  Company Number: US-ASTRAZENECA-2008UW28064

PATIENT
  Age: 14 Year
  Sex: Female

DRUGS (2)
  1. SYMBICORT [Suspect]
     Dosage: 80/4.5 TWO INHALATIONS BID
     Route: 055
  2. SYMBICORT [Suspect]
     Dosage: 80/4.5  DECREASED NUMBER OF INHALATIONS PER DAY
     Route: 055

REACTIONS (1)
  - FEELING JITTERY [None]
